FAERS Safety Report 8658962 (Version 5)
Quarter: 2013Q1

REPORT INFORMATION
  Report Type: Report from Study
  Country: DE (occurrence: DE)
  Receive Date: 20120710
  Receipt Date: 20130111
  Transmission Date: 20140127
  Serious: Yes (Hospitalization, Other)
  Sender: FDA-Public Use
  Company Number: DE-ABBOTT-12P-062-0952180-00

PATIENT
  Age: 41 Year
  Sex: Male
  Weight: 84 kg

DRUGS (9)
  1. KALETRA TABLETS 200MG/50MG [Suspect]
     Indication: HIV INFECTION
     Dosage: FOUR PER DAY
     Dates: start: 20060404
  2. ISENTRESS [Concomitant]
     Indication: PRODUCT USED FOR UNKNOWN INDICATION
     Dates: start: 20091223
  3. CITALOPRAM [Concomitant]
     Indication: PRODUCT USED FOR UNKNOWN INDICATION
     Dates: start: 20110913
  4. TRAMAL [Concomitant]
     Indication: PRODUCT USED FOR UNKNOWN INDICATION
     Dosage: ON DEMAND
     Dates: start: 20110630
  5. PEGASYS [Concomitant]
     Indication: PRODUCT USED FOR UNKNOWN INDICATION
     Dates: start: 20110603, end: 20110630
  6. COPEGUS [Concomitant]
     Indication: PRODUCT USED FOR UNKNOWN INDICATION
     Dosage: DAILY DOSE 1200 MG
     Dates: start: 20110603, end: 20110630
  7. AMITRIPTYLIN [Concomitant]
     Indication: PRODUCT USED FOR UNKNOWN INDICATION
     Dosage: DAILY DOSE 10 MG
     Dates: start: 20111102
  8. AMITRIPTYLIN [Concomitant]
     Dosage: DAILY DOSE 25 MG
     Dates: start: 20111121
  9. METAMIZOL [Concomitant]
     Indication: PRODUCT USED FOR UNKNOWN INDICATION
     Dosage: ON DEMAND
     Route: 050
     Dates: start: 20111121

REACTIONS (4)
  - Large intestine perforation [Recovered/Resolved]
  - Appendix disorder [Recovered/Resolved]
  - Abdominal pain lower [Recovered/Resolved]
  - Colon injury [Unknown]
